FAERS Safety Report 9158544 (Version 2)
Quarter: 2014Q1

REPORT INFORMATION
  Report Type: Report from Study
  Country: TR (occurrence: TR)
  Receive Date: 20130312
  Receipt Date: 20140311
  Transmission Date: 20141002
  Serious: Yes (Death, Hospitalization)
  Sender: FDA-Public Use
  Company Number: TR-US-EMD SERONO, INC.-7198870

PATIENT
  Sex: Female
  Weight: 3 kg

DRUGS (1)
  1. SAIZEN [Suspect]
     Indication: HYPOGLYCAEMIA
     Route: 058
     Dates: start: 20130107, end: 201303

REACTIONS (3)
  - Hypoglycaemia [Fatal]
  - Cerebral disorder [Unknown]
  - Off label use [Unknown]
